FAERS Safety Report 17927824 (Version 1)
Quarter: 2020Q2

REPORT INFORMATION
  Report Type: Spontaneous
  Country: FR (occurrence: FR)
  Receive Date: 20200623
  Receipt Date: 20200623
  Transmission Date: 20200714
  Serious: Yes (Death, Other)
  Sender: FDA-Public Use
  Company Number: FR-SUN PHARMACEUTICAL INDUSTRIES LTD-2020RR-250789

PATIENT
  Age: 42 Year
  Sex: Female
  Weight: 96 kg

DRUGS (3)
  1. SPIFEN 400 MG, COMPRIME PELLICULE [Suspect]
     Active Substance: IBUPROFEN
     Indication: INFLUENZA LIKE ILLNESS
     Dosage: 1200 MILLIGRAM, UNKNOWN
     Route: 048
     Dates: start: 20200313, end: 20200315
  2. PIVALONE (NEOMYCIN SULFATE/POLYMYXIN B SULFATE/TIXOCORTOL PIVALATE) [Suspect]
     Active Substance: NEOMYCIN\POLYMYXIN B\TIXOCORTOL
     Indication: RHINITIS
     Dosage: UNK
     Route: 045
     Dates: start: 20200313
  3. DICLOFENAC [Suspect]
     Active Substance: DICLOFENAC
     Indication: MYALGIA
     Dosage: UNK
     Route: 061
     Dates: start: 20200313

REACTIONS (3)
  - Coronavirus infection [Fatal]
  - Acute respiratory distress syndrome [Fatal]
  - Condition aggravated [Fatal]

NARRATIVE: CASE EVENT DATE: 20200318
